FAERS Safety Report 5967661-7 (Version None)
Quarter: 2008Q4

REPORT INFORMATION
  Report Type: 
  Country: None (occurrence: None)
  Receive Date: 20081126
  Receipt Date: 20081117
  Transmission Date: 20090506
  Serious: Yes (Hospitalization)
  Sender: FDA-Public Use
  Company Number: PHHO2008FR08445

PATIENT
  Sex: Male
  Weight: 70 kg

DRUGS (3)
  1. CERTICAN [Suspect]
     Indication: RENAL TRANSPLANT
     Dosage: 0.5 X 2
     Dates: start: 20070307, end: 20080214
  2. NEORAL [Suspect]
     Indication: RENAL TRANSPLANT
     Dosage: UNK
     Dates: start: 20070206
  3. ANTIHYPERTENSIVE DRUGS [Concomitant]

REACTIONS (3)
  - ANAEMIA [None]
  - C-REACTIVE PROTEIN INCREASED [None]
  - LUNG DISORDER [None]
